FAERS Safety Report 9751915 (Version 1)
Quarter: 2013Q4

REPORT INFORMATION
  Report Type: Spontaneous
  Country: US (occurrence: US)
  Receive Date: 20131213
  Receipt Date: 20131213
  Transmission Date: 20140711
  Serious: Yes (Other)
  Sender: FDA-Public Use
  Company Number: US-BRISTOL-MYERS SQUIBB COMPANY-19881416

PATIENT
  Age: 70 Year
  Sex: Female

DRUGS (21)
  1. ELIQUIS [Suspect]
     Indication: ATRIAL FIBRILLATION
     Route: 048
  2. AMIODARONE [Concomitant]
  3. ACETYLSALICYLIC ACID [Concomitant]
  4. BYSTOLIC [Concomitant]
  5. CALCIUM [Concomitant]
  6. CARAFATE [Concomitant]
  7. LIDODERM PATCH [Concomitant]
  8. LUNESTA [Concomitant]
  9. MEVACOR [Concomitant]
  10. MONTELUKAST [Concomitant]
  11. NEXIUM [Concomitant]
  12. VESICARE [Concomitant]
  13. VITAMIN B12 [Concomitant]
  14. VITAMIN D [Concomitant]
  15. ZANAFLEX [Concomitant]
  16. DENOSUMAB [Concomitant]
  17. QUININE SULFATE [Concomitant]
  18. AZELASTINE [Concomitant]
     Dosage: NASAL SPRAY
  19. AZILSARTAN MEDOXOMIL [Concomitant]
  20. ZANAFLEX [Concomitant]
  21. BENZONATATE [Concomitant]

REACTIONS (1)
  - Bronchial carcinoma [Unknown]
